FAERS Safety Report 14237004 (Version 1)
Quarter: 2017Q4

REPORT INFORMATION
  Report Type: Spontaneous
  Country: CA (occurrence: US)
  Receive Date: 20171129
  Receipt Date: 20171129
  Transmission Date: 20180321
  Serious: No
  Sender: FDA-Public Use
  Company Number: CA-JNJFOC-20171000467

PATIENT

DRUGS (2)
  1. SUPER STRENGTH MOTRIN IB LIQUID GELS (CANADA) [Suspect]
     Active Substance: IBUPROFEN
     Indication: PRODUCT USED FOR UNKNOWN INDICATION
     Dosage: ONCE
     Route: 048
  2. SUPER STRENGTH MOTRIN IB LIQUID GELS (CANADA) [Suspect]
     Active Substance: IBUPROFEN
     Route: 048

REACTIONS (2)
  - Oral discomfort [Unknown]
  - Tongue discomfort [Unknown]
